FAERS Safety Report 6337968-2 (Version None)
Quarter: 2009Q3

REPORT INFORMATION
  Report Type: 
  Country: None (occurrence: None)
  Receive Date: 20090902
  Receipt Date: 20090827
  Transmission Date: 20100115
  Serious: Yes (Death, Hospitalization)
  Sender: FDA-Public Use
  Company Number: ES-MERCK-0908ESP00017

PATIENT
  Age: 15 Year
  Sex: Male

DRUGS (5)
  1. CANCIDAS [Suspect]
     Indication: LUNG INFECTION
     Route: 042
     Dates: start: 20090501, end: 20090602
  2. CEFEPIME [Suspect]
     Indication: LUNG INFECTION
     Route: 042
     Dates: start: 20090501, end: 20090602
  3. NIFEDIPINE [Suspect]
     Indication: HYPERTENSION
     Route: 048
     Dates: start: 20090501, end: 20090602
  4. LEVETIRACETAM [Suspect]
     Indication: CONVULSION PROPHYLAXIS
     Route: 048
     Dates: start: 20090301, end: 20090602
  5. BASILIXIMAB [Suspect]
     Indication: GRAFT VERSUS HOST DISEASE
     Route: 042
     Dates: start: 20090401, end: 20090501

REACTIONS (1)
  - TOXIC EPIDERMAL NECROLYSIS [None]
